FAERS Safety Report 15761743 (Version 2)
Quarter: 2019Q1

REPORT INFORMATION
  Report Type: Spontaneous
  Country: US (occurrence: US)
  Receive Date: 20181226
  Receipt Date: 20190110
  Transmission Date: 20190417
  Serious: Yes (Other)
  Sender: FDA-Public Use
  Company Number: US-ASTRAZENECA-2018SF69415

PATIENT
  Sex: Male
  Weight: 5.6 kg

DRUGS (19)
  1. TRIAMCINOLONE [Concomitant]
     Active Substance: TRIAMCINOLONE
     Dosage: AS NEEDED
     Route: 061
  2. SODIUM CHLORIDE. [Concomitant]
     Active Substance: SODIUM CHLORIDE
     Route: 065
  3. BENADRYL [Concomitant]
     Active Substance: DIPHENHYDRAMINE HYDROCHLORIDE
  4. ERYTHROMYCIN. [Concomitant]
     Active Substance: ERYTHROMYCIN
  5. OMEPRAZOLE. [Concomitant]
     Active Substance: OMEPRAZOLE
  6. TRIAMCINOLONE [Concomitant]
     Active Substance: TRIAMCINOLONE
  7. ACETAMINOPHEN. [Concomitant]
     Active Substance: ACETAMINOPHEN
  8. HYDROCORTISONE. [Concomitant]
     Active Substance: HYDROCORTISONE
  9. IPRATROPIUM [Concomitant]
     Active Substance: IPRATROPIUM
  10. RANITIDINE. [Concomitant]
     Active Substance: RANITIDINE
     Indication: REFLUX GASTRITIS
     Route: 065
  11. IBUPROFEN. [Concomitant]
     Active Substance: IBUPROFEN
  12. NYSTATIN. [Concomitant]
     Active Substance: NYSTATIN
  13. PRILOSEC [Suspect]
     Active Substance: OMEPRAZOLE MAGNESIUM
     Indication: REFLUX GASTRITIS
     Route: 048
  14. SYNAGIS [Suspect]
     Active Substance: PALIVIZUMAB
     Indication: CHRONIC RESPIRATORY FAILURE
     Dosage: MG/KG MONTHLY
     Route: 030
     Dates: start: 201802
  15. RANITIDINE. [Concomitant]
     Active Substance: RANITIDINE
  16. TRIAMCINOLONE [Concomitant]
     Active Substance: TRIAMCINOLONE
     Dosage: 1 PERCENT DOSE TWICE DAILY FOR 10 DAYS
     Route: 061
  17. KEPPRA [Concomitant]
     Active Substance: LEVETIRACETAM
     Route: 065
  18. CHLOROTHIAZIDE. [Concomitant]
     Active Substance: CHLOROTHIAZIDE
  19. ATROVENT INHALER [Concomitant]
     Dosage: 17UG/INHAL TWO TIMES A DAY
     Route: 055

REACTIONS (27)
  - Acquired epiblepharon [Unknown]
  - Strabismus [Unknown]
  - Heart rate increased [Unknown]
  - Hyperventilation [Unknown]
  - Astigmatism [Unknown]
  - Shunt malfunction [Unknown]
  - Product use in unapproved indication [Unknown]
  - Hypoventilation [Unknown]
  - Rhinorrhoea [Unknown]
  - General physical health deterioration [Unknown]
  - Gastrooesophageal reflux disease [Unknown]
  - Respiratory failure [Unknown]
  - Respiratory rate increased [Unknown]
  - Milk allergy [Unknown]
  - Poor feeding infant [Unknown]
  - Eustachian tube dysfunction [Unknown]
  - Failure to thrive [Unknown]
  - Cerebral cyst [Unknown]
  - Atelectasis [Unknown]
  - Malnutrition [Unknown]
  - Stereotypy [Unknown]
  - Rhinovirus infection [Unknown]
  - Hypersensitivity [Unknown]
  - Lung disorder [Unknown]
  - Tachycardia [Unknown]
  - Aerophagia [Unknown]
  - Dysphagia [Unknown]
